FAERS Safety Report 4983599-6 (Version None)
Quarter: 2006Q2

REPORT INFORMATION
  Report Type: 
  Country: None (occurrence: None)
  Receive Date: 20060426
  Receipt Date: 20060417
  Transmission Date: 20061013
  Serious: Yes (Hospitalization)
  Sender: FDA-Public Use
  Company Number: US-JNJFOC-20060400829

PATIENT
  Sex: Male
  Weight: 127.01 kg

DRUGS (19)
  1. RISPERDAL CONSTA [Suspect]
     Indication: SCHIZOPHRENIA
     Route: 030
  2. SIMVASTATIN [Concomitant]
  3. VITAMIN E [Concomitant]
     Indication: VITAMIN SUPPLEMENTATION
  4. FUROSEMIDE [Concomitant]
  5. COUMADIN [Concomitant]
     Indication: ANTICOAGULANT THERAPY
  6. THIORIDAZINE HCL [Concomitant]
  7. SEROQUEL [Concomitant]
  8. TYLENOL (CAPLET) [Concomitant]
     Indication: PAIN
  9. BACLOFEN [Concomitant]
  10. ROPINIROLE [Concomitant]
     Indication: PARKINSON'S DISEASE
  11. DEPAKOTE [Concomitant]
     Indication: SCHIZOPHRENIA
  12. LEVOTHYROXINE SODIUM [Concomitant]
     Indication: HYPOTHYROIDISM
  13. LISINOPRIL [Concomitant]
     Indication: BLOOD PRESSURE
  14. DOCUSATE SODIUM [Concomitant]
     Indication: CONSTIPATION
  15. MAGNESIUM HYDROCHLORIDE [Concomitant]
     Indication: CONSTIPATION
  16. PRAZOSIN [Concomitant]
  17. RISPERDAL [Concomitant]
     Route: 048
  18. RISPERDAL [Concomitant]
     Indication: SCHIZOPHRENIA
     Route: 048
  19. COGENTIN [Concomitant]
     Indication: PARKINSONISM

REACTIONS (3)
  - AGGRESSION [None]
  - AGITATION [None]
  - REFUSAL OF TREATMENT BY PATIENT [None]
